FAERS Safety Report 17331383 (Version 1)
Quarter: 2020Q1

REPORT INFORMATION
  Report Type: Spontaneous
  Country: DE (occurrence: DE)
  Receive Date: 20200127
  Receipt Date: 20200127
  Transmission Date: 20200409
  Serious: Yes (Other)
  Sender: FDA-Public Use
  Company Number: DE-ALLERGAN-2003045US

PATIENT
  Sex: Female
  Weight: 85 kg

DRUGS (1)
  1. OFLOXACIN UNK [Suspect]
     Active Substance: OFLOXACIN
     Indication: INFECTED BITE
     Dosage: 5 DF
     Route: 065
     Dates: start: 20180422, end: 20180425

REACTIONS (5)
  - Palpitations [Recovered/Resolved with Sequelae]
  - Exercise tolerance decreased [Recovered/Resolved with Sequelae]
  - Arrhythmia [Recovered/Resolved with Sequelae]
  - Dizziness [Recovered/Resolved with Sequelae]
  - Paraesthesia oral [Recovered/Resolved with Sequelae]

NARRATIVE: CASE EVENT DATE: 2018
